FAERS Safety Report 15620257 (Version 2)
Quarter: 2018Q4

REPORT INFORMATION
  Report Type: Other
  Country: NL (occurrence: NL)
  Receive Date: 20181115
  Receipt Date: 20181218
  Transmission Date: 20190205
  Serious: Yes (Hospitalization, Other)
  Sender: FDA-Public Use
  Company Number: NL-APOTEX-2018AP024460

PATIENT
  Age: 64 Year
  Sex: Female

DRUGS (2)
  1. PARACETAMOL APOTEX TABLETTEN [Suspect]
     Active Substance: ACETAMINOPHEN
     Indication: PRODUCT USED FOR UNKNOWN INDICATION
     Dosage: 50 G,TOTAL,
     Route: 048
  2. CODEINE [Suspect]
     Active Substance: CODEINE
     Indication: PRODUCT USED FOR UNKNOWN INDICATION
     Dosage: 5 G,TOTAL,
     Route: 048

REACTIONS (9)
  - Overdose [Recovered/Resolved]
  - Poisoning [Unknown]
  - Hepatic failure [Unknown]
  - Coma scale abnormal [Unknown]
  - Loss of consciousness [Recovered/Resolved]
  - Overdose [Unknown]
  - Blood lactic acid increased [Recovered/Resolved]
  - Alanine aminotransferase increased [Recovered/Resolved]
  - Hypothermia [Recovered/Resolved]
